FAERS Safety Report 4532961-4 (Version None)
Quarter: 2004Q4

REPORT INFORMATION
  Report Type: 
  Country: None (occurrence: None)
  Receive Date: 20041206
  Receipt Date: 20041018
  Transmission Date: 20050328
  Serious: No
  Sender: FDA-Public Use
  Company Number: USA041081326

PATIENT
  Sex: Male

DRUGS (6)
  1. CYMBALTA [Suspect]
     Indication: DEPRESSION
     Dosage: 30 MG
     Dates: start: 20041001
  2. RISPERDAL [Concomitant]
  3. ATIVAN [Concomitant]
  4. LAMICTAL [Concomitant]
  5. DEXTROSTAT (DEXAMFETAMINE SULFATE) [Concomitant]
  6. HYDROCHLOROTHIAZIDE [Concomitant]

REACTIONS (6)
  - ABNORMAL DREAMS [None]
  - COLD SWEAT [None]
  - FATIGUE [None]
  - FEELING ABNORMAL [None]
  - INSOMNIA [None]
  - SOMNOLENCE [None]
